FAERS Safety Report 5820432-4 (Version None)
Quarter: 2008Q3

REPORT INFORMATION
  Report Type: 
  Country: None (occurrence: None)
  Receive Date: 20080724
  Receipt Date: 20070831
  Transmission Date: 20090109
  Serious: Yes (Hospitalization)
  Sender: FDA-Public Use
  Company Number: A0666368A

PATIENT
  Age: 64 Year
  Sex: Female

DRUGS (7)
  1. AVANDIA [Suspect]
     Dosage: 8MG PER DAY
     Route: 048
     Dates: start: 20030401, end: 20070601
  2. EFFEXOR XR [Concomitant]
  3. MOBIC [Concomitant]
  4. GLUCOTROL [Concomitant]
  5. METFORMIN [Concomitant]
  6. SYNTHROID [Concomitant]
  7. ZETIA [Concomitant]

REACTIONS (1)
  - FOOT FRACTURE [None]
